FAERS Safety Report 7200536-4 (Version None)
Quarter: 2010Q4

REPORT INFORMATION
  Report Type: 
  Country: None (occurrence: None)
  Receive Date: 20101228
  Receipt Date: 20101228
  Transmission Date: 20110411
  Serious: Yes (Hospitalization, Other)
  Sender: FDA-Public Use
  Company Number: BE-ABBOTT-10P-013-0670240-00

PATIENT
  Sex: Male
  Weight: 77 kg

DRUGS (2)
  1. HUMIRA [Suspect]
     Indication: PSORIASIS
  2. SEDERGINE [Concomitant]
     Indication: NASOPHARYNGITIS
     Dosage: OCCASIONALLY

REACTIONS (5)
  - CHORIORETINITIS [None]
  - DISSEMINATED TUBERCULOSIS [None]
  - LIVER FUNCTION TEST ABNORMAL [None]
  - PSORIASIS [None]
  - TUBERCULOSIS OF CENTRAL NERVOUS SYSTEM [None]
